FAERS Safety Report 24164152 (Version 1)
Quarter: 2024Q3

REPORT INFORMATION
  Report Type: Spontaneous
  Country: US (occurrence: US)
  Receive Date: 20240801
  Receipt Date: 20240801
  Transmission Date: 20241017
  Serious: No
  Sender: ALKERMES
  Company Number: US-ALKERMES INC.-ALK-2024-001981

PATIENT
  Sex: Male

DRUGS (3)
  1. VIVITROL [Suspect]
     Active Substance: NALTREXONE
     Indication: Alcohol use disorder
     Dosage: 380 MILLIGRAM, QMO
     Route: 030
     Dates: start: 202201
  2. VIVITROL [Suspect]
     Active Substance: NALTREXONE
     Indication: Alcohol abuse
  3. OXYCODONE [Suspect]
     Active Substance: OXYCODONE
     Indication: Rotator cuff syndrome
     Dosage: UNK
     Route: 065
     Dates: start: 202407

REACTIONS (2)
  - Rotator cuff syndrome [Unknown]
  - Contraindicated product prescribed [Unknown]
